FAERS Safety Report 21058907 (Version 2)
Quarter: 2022Q3

REPORT INFORMATION
  Report Type: Spontaneous
  Country: US (occurrence: US)
  Receive Date: 20220708
  Receipt Date: 20220711
  Transmission Date: 20221027
  Serious: No
  Sender: FDA-Public Use
  Company Number: US-PFIZER INC-202200939047

PATIENT
  Age: 61 Year
  Sex: Male
  Weight: 79.38 kg

DRUGS (9)
  1. PAXLOVID [Suspect]
     Active Substance: NIRMATRELVIR\RITONAVIR
     Indication: COVID-19 treatment
     Dosage: [PF-07321332 300 MG]/[RITONAVIR 100 MG]; 2X/DAY
     Dates: start: 20220706
  2. AMLODIPINE [Concomitant]
     Active Substance: AMLODIPINE BESYLATE
     Dosage: UNK
  3. METOPROLOL [Concomitant]
     Active Substance: METOPROLOL
     Dosage: UNK
  4. ASPIRIN [Concomitant]
     Active Substance: ASPIRIN
     Dosage: UNK
  5. MUCINEX SINUS MAX PRESSURE, PAIN + COUGH [Concomitant]
     Dosage: UNK (TAKEN FOR THREE DAYS)
  6. ZINC [Concomitant]
     Active Substance: ZINC
     Dosage: UNK
  7. VITAMIN C [Concomitant]
     Active Substance: ASCORBIC ACID
     Dosage: UNK
  8. CUMIN [Concomitant]
     Active Substance: CUMIN
     Dosage: UNK
  9. EXTRA STRENGTH TYLENOL NIGHTTIME [Concomitant]
     Indication: Headache
     Dosage: UNK

REACTIONS (1)
  - Dysgeusia [Not Recovered/Not Resolved]

NARRATIVE: CASE EVENT DATE: 20220706
